FAERS Safety Report 8547639 (Version 4)
Quarter: 2017Q1

REPORT INFORMATION
  Report Type: Spontaneous
  Country: US (occurrence: US)
  Receive Date: 20120504
  Receipt Date: 20170227
  Transmission Date: 20170429
  Serious: Yes (Disabling, Other)
  Sender: FDA-Public Use
  Company Number: US-MERCK-1204USA04460

PATIENT
  Sex: Male
  Weight: 57.6 kg

DRUGS (3)
  1. PROPECIA [Suspect]
     Active Substance: FINASTERIDE
     Indication: ALOPECIA
     Dosage: 1 MG, UNK
     Route: 048
     Dates: start: 1998, end: 1999
  2. PROPECIA [Suspect]
     Active Substance: FINASTERIDE
     Dosage: 1 MG, UNK
     Route: 048
     Dates: start: 20091211, end: 2010
  3. PROPECIA [Suspect]
     Active Substance: FINASTERIDE
     Dosage: 1 MG, QD
     Route: 048
     Dates: start: 20021008, end: 2006

REACTIONS (24)
  - Suicidal ideation [Not Recovered/Not Resolved]
  - Rotator cuff repair [Unknown]
  - Migraine [Unknown]
  - Tension headache [Unknown]
  - Fatigue [Unknown]
  - Ejaculation failure [Not Recovered/Not Resolved]
  - Social avoidant behaviour [Unknown]
  - Sexual dysfunction [Not Recovered/Not Resolved]
  - Anger [Unknown]
  - Tenoplasty [Unknown]
  - Insomnia [Not Recovered/Not Resolved]
  - Erectile dysfunction [Not Recovered/Not Resolved]
  - Memory impairment [Unknown]
  - Generalised anxiety disorder [Not Recovered/Not Resolved]
  - Depression [Not Recovered/Not Resolved]
  - Testicular atrophy [Unknown]
  - Temporomandibular joint syndrome [Unknown]
  - Disturbance in attention [Unknown]
  - Pain [Not Recovered/Not Resolved]
  - Unevaluable event [Unknown]
  - Muscle strain [Unknown]
  - Cognitive disorder [Not Recovered/Not Resolved]
  - Libido decreased [Not Recovered/Not Resolved]
  - Ejaculation disorder [Not Recovered/Not Resolved]

NARRATIVE: CASE EVENT DATE: 200204
